FAERS Safety Report 19066356 (Version 3)
Quarter: 2021Q3

REPORT INFORMATION
  Report Type: Spontaneous
  Country: US (occurrence: US)
  Receive Date: 20210328
  Receipt Date: 20210803
  Transmission Date: 20211014
  Serious: Yes (Disabling)
  Sender: FDA-Public Use
  Company Number: US-TEVA-2021-US-1893627

PATIENT
  Age: 70 Year
  Sex: Female
  Weight: 87 kg

DRUGS (11)
  1. CYCLOPHOSPHAMIDE. [Concomitant]
     Active Substance: CYCLOPHOSPHAMIDE
     Indication: BREAST CANCER FEMALE
     Dosage: NUMBER OF CYCLE ? 06, FREQUENCY ? EVERY THREE WEEKS
     Dates: start: 20160511, end: 20160831
  2. RAMIPRIL. [Concomitant]
     Active Substance: RAMIPRIL
     Dosage: ONGOING
     Route: 065
     Dates: start: 20130101
  3. DOCETAXEL INJECTION [Suspect]
     Active Substance: DOCETAXEL
     Indication: BREAST CANCER FEMALE
     Dosage: DOSAGE 60MG, NUMBER OF CYCLE ? 06, FREQUENCY ? EVERY THREE WEEKS
     Dates: start: 20160511, end: 20160831
  4. ALPRAZOLAM. [Concomitant]
     Active Substance: ALPRAZOLAM
     Route: 065
     Dates: start: 20130509, end: 20191231
  5. COREG [Concomitant]
     Active Substance: CARVEDILOL
     Dosage: ONGOING
     Route: 065
     Dates: start: 20130409
  6. AMLODIPINE [Concomitant]
     Active Substance: AMLODIPINE BESYLATE
     Dosage: ONGOING
     Route: 065
     Dates: start: 20130101
  7. METFORMIN [Concomitant]
     Active Substance: METFORMIN HYDROCHLORIDE
     Dosage: ONGOING
     Route: 065
     Dates: start: 20130101
  8. LEVOTHYROXINE. [Concomitant]
     Active Substance: LEVOTHYROXINE
     Dosage: ONGOING
     Route: 065
     Dates: start: 20130101
  9. HYDROCODONE [Concomitant]
     Active Substance: HYDROCODONE
     Dosage: ONGOING
     Route: 065
     Dates: start: 20130101
  10. MINOCYCLINE [Concomitant]
     Active Substance: MINOCYCLINE HYDROCHLORIDE
     Dosage: ONGOING
     Route: 065
     Dates: start: 20130101
  11. SIMVASTATIN. [Concomitant]
     Active Substance: SIMVASTATIN
     Dosage: ONGOING
     Route: 065
     Dates: start: 20130101

REACTIONS (4)
  - Hair colour changes [Not Recovered/Not Resolved]
  - Hair texture abnormal [Not Recovered/Not Resolved]
  - Madarosis [Not Recovered/Not Resolved]
  - Alopecia areata [Not Recovered/Not Resolved]

NARRATIVE: CASE EVENT DATE: 201702
